FAERS Safety Report 6203670-0 (Version None)
Quarter: 2009Q2

REPORT INFORMATION
  Report Type: 
  Country: None (occurrence: None)
  Receive Date: 20090527
  Receipt Date: 20090518
  Transmission Date: 20091009
  Serious: Yes (Other)
  Sender: FDA-Public Use
  Company Number: US-BAYER-200921042NA

PATIENT
  Age: 65 Year
  Sex: Male

DRUGS (1)
  1. CIPRO [Suspect]
     Indication: INFECTION
     Dates: start: 20090416

REACTIONS (2)
  - LIGAMENT RUPTURE [None]
  - MUSCULAR WEAKNESS [None]
